FAERS Safety Report 25498901 (Version 3)
Quarter: 2025Q3

REPORT INFORMATION
  Report Type: Report from Study
  Country: GB (occurrence: GB)
  Receive Date: 20250701
  Receipt Date: 20250811
  Transmission Date: 20251020
  Serious: Yes (Other)
  Sender: SANDOZ
  Company Number: GB-SANDOZ-SDZ2025GB045382

PATIENT
  Age: 77 Year
  Sex: Male

DRUGS (2)
  1. OMNITROPE [Suspect]
     Active Substance: SOMATROPIN
     Indication: Hypothalamo-pituitary disorder
     Dosage: 0.50 MG, QD
     Route: 058
     Dates: start: 20250423
  2. OMNITROPE [Suspect]
     Active Substance: SOMATROPIN
     Indication: Hypopituitarism
     Dosage: 5 MG, QD
     Route: 058

REACTIONS (5)
  - Brain operation [Unknown]
  - Fatigue [Unknown]
  - Injection site bruising [Unknown]
  - Product storage error [Unknown]
  - Product dose omission issue [Unknown]

NARRATIVE: CASE EVENT DATE: 20250622
